FAERS Safety Report 6649556-9 (Version None)
Quarter: 2010Q1

REPORT INFORMATION
  Report Type: 
  Country: None (occurrence: None)
  Receive Date: 20100324
  Receipt Date: 20100324
  Transmission Date: 20100710
  Serious: Yes (Life-Threatening, Other)
  Sender: FDA-Public Use
  Company Number: None

PATIENT
  Age: 23 Year
  Sex: Female
  Weight: 68.0396 kg

DRUGS (2)
  1. CYMBALTA [Suspect]
     Indication: DEPRESSION
     Dosage: 60MG DAILY PO
     Route: 048
     Dates: start: 20091201, end: 20100314
  2. ORTHO TRI-CYCLEN [Concomitant]

REACTIONS (8)
  - ALTERED STATE OF CONSCIOUSNESS [None]
  - DECREASED INTEREST [None]
  - DIZZINESS [None]
  - FEELINGS OF WORTHLESSNESS [None]
  - IMPAIRED DRIVING ABILITY [None]
  - LETHARGY [None]
  - SUICIDAL IDEATION [None]
  - THINKING ABNORMAL [None]
